FAERS Safety Report 5235970-5 (Version None)
Quarter: 2007Q1

REPORT INFORMATION
  Report Type: 
  Country: None (occurrence: None)
  Receive Date: 20061208
  Receipt Date: 20060413
  Transmission Date: 20070707
  Serious: Yes (Other)
  Sender: FDA-Public Use
  Company Number: 2006UW06584

PATIENT
  Age: 60 Year
  Sex: Female
  Weight: 71.214 kg

DRUGS (1)
  1. CRESTOR [Suspect]
     Indication: BLOOD CHOLESTEROL INCREASED
     Dosage: 10 MG PO
     Route: 048
     Dates: start: 20060328

REACTIONS (3)
  - DRY SKIN [None]
  - ERYTHEMA [None]
  - SKIN EXFOLIATION [None]
